FAERS Safety Report 6125962-6 (Version None)
Quarter: 2009Q1

REPORT INFORMATION
  Report Type: 
  Country: None (occurrence: None)
  Receive Date: 20090320
  Receipt Date: 20090309
  Transmission Date: 20090719
  Serious: Yes (Other)
  Sender: FDA-Public Use
  Company Number: MX-AMGEN-US337391

PATIENT
  Age: 72 Year
  Sex: Female

DRUGS (1)
  1. NEULASTIM [Suspect]
     Indication: MULTIPLE MYELOMA
     Route: 058
     Dates: start: 20090201, end: 20090201

REACTIONS (4)
  - ARTHRALGIA [None]
  - ASTHENIA [None]
  - MYALGIA [None]
  - PYREXIA [None]
